FAERS Safety Report 6909067-X (Version None)
Quarter: 2010Q3

REPORT INFORMATION
  Report Type: 
  Country: None (occurrence: None)
  Receive Date: 20100803
  Receipt Date: 20100721
  Transmission Date: 20110219
  Serious: Yes (Other)
  Sender: FDA-Public Use
  Company Number: 015771

PATIENT
  Sex: Male

DRUGS (4)
  1. CIMZIA [Suspect]
     Indication: CROHN'S DISEASE
     Dosage: TRANSPLACENTAL
     Route: 064
     Dates: start: 20090217
  2. PREDNISONE [Concomitant]
  3. OXYCODONE [Concomitant]
  4. NEXIUM [Concomitant]

REACTIONS (2)
  - MATERNAL DRUGS AFFECTING FOETUS [None]
  - PREMATURE BABY [None]
